FAERS Safety Report 5814556-5 (Version None)
Quarter: 2008Q3

REPORT INFORMATION
  Report Type: 
  Country: None (occurrence: None)
  Receive Date: 20080718
  Receipt Date: 20070810
  Transmission Date: 20090109
  Serious: No
  Sender: FDA-Public Use
  Company Number: US-KINGPHARMUSA00001-K200701019

PATIENT

DRUGS (2)
  1. LEVOXYL [Suspect]
     Indication: THYROIDECTOMY
     Dosage: 125 MCG, QD
     Route: 048
     Dates: start: 20030101
  2. ZYRTEC [Concomitant]
     Indication: SEASONAL ALLERGY
     Dosage: UNK, UNK

REACTIONS (6)
  - DYSPHONIA [None]
  - HYPOTHYROIDISM [None]
  - ORAL DISCOMFORT [None]
  - PERIPHERAL COLDNESS [None]
  - SLUGGISHNESS [None]
  - TEMPERATURE INTOLERANCE [None]
